FAERS Safety Report 7006614-7 (Version None)
Quarter: 2010Q3

REPORT INFORMATION
  Report Type: 
  Country: None (occurrence: None)
  Receive Date: 20100921
  Receipt Date: 20100910
  Transmission Date: 20110219
  Serious: Yes (Hospitalization, Other)
  Sender: FDA-Public Use
  Company Number: PHHY2010CA57446

PATIENT
  Sex: Female

DRUGS (7)
  1. ACLASTA [Suspect]
     Indication: OSTEOPOROSIS
     Dosage: 5 MG
     Dates: start: 20100827
  2. METOPROLOL [Concomitant]
     Dosage: 50 MG, BID
  3. ALTACE [Concomitant]
     Dosage: 5 MG, BID
  4. RAMIPRIL [Concomitant]
     Dosage: 16 MG, QD
  5. LASIX [Concomitant]
     Dosage: 40 MG, BID
  6. COUMADIN [Concomitant]
     Dosage: 3 MG, QD
  7. CALCIUM WITH VITAMIN D [Concomitant]

REACTIONS (9)
  - CHEST PAIN [None]
  - DIARRHOEA [None]
  - DYSPNOEA [None]
  - FATIGUE [None]
  - INSOMNIA [None]
  - NAUSEA [None]
  - PYREXIA [None]
  - RECTAL HAEMORRHAGE [None]
  - VOMITING [None]
